FAERS Safety Report 6998057-7 (Version None)
Quarter: 2010Q3

REPORT INFORMATION
  Report Type: 
  Country: None (occurrence: None)
  Receive Date: 20100920
  Receipt Date: 20100219
  Transmission Date: 20110219
  Serious: No
  Sender: FDA-Public Use
  Company Number: US-ASTRAZENECA-2010SE07597

PATIENT
  Age: 45 Year
  Sex: Female

DRUGS (5)
  1. SEROQUEL [Suspect]
     Indication: BIPOLAR DISORDER
     Dosage: 300 MG QD AND 50 MG PRN
     Route: 048
  2. SEROQUEL [Suspect]
     Route: 048
     Dates: start: 20080606
  3. SEROQUEL [Suspect]
     Route: 048
  4. SEROQUEL [Suspect]
     Route: 048
  5. SUBSTANCE ABUSE [Concomitant]

REACTIONS (3)
  - DRUG DOSE OMISSION [None]
  - MANIA [None]
  - ORTHOSTATIC HYPOTENSION [None]
